FAERS Safety Report 5967637-X (Version None)
Quarter: 2008Q4

REPORT INFORMATION
  Report Type: 
  Country: None (occurrence: None)
  Receive Date: 20081126
  Receipt Date: 20081117
  Transmission Date: 20090506
  Serious: Yes (Hospitalization)
  Sender: FDA-Public Use
  Company Number: PHEH2008US10362

PATIENT
  Sex: Female
  Weight: 72.562 kg

DRUGS (13)
  1. RECLAST [Suspect]
     Indication: OSTEOPOROSIS POSTMENOPAUSAL
     Dosage: 5MG/100ML, ONCE/SINGLE
     Route: 042
     Dates: start: 20081112
  2. CALCIUM [Concomitant]
     Dosage: 600 UNK, UNK
  3. FOSAMAX [Concomitant]
     Dosage: 70 MG, QW
  4. SEREVENT [Concomitant]
  5. CELEBREX [Concomitant]
     Dosage: 200 MG, UNK
  6. COUMADIN [Concomitant]
  7. PRILOSEC [Concomitant]
     Dosage: 20 MG, UNK
  8. AMBIEN [Concomitant]
  9. LASIX [Concomitant]
     Dosage: 20 MG, QD
  10. MIACALCIN [Concomitant]
  11. LANOXIN [Concomitant]
  12. POTASSIUM CHLORIDE [Concomitant]
  13. NITROGLYCERIN [Concomitant]
     Dosage: UNK

REACTIONS (5)
  - CARDIAC FAILURE CONGESTIVE [None]
  - COUGH [None]
  - DYSPNOEA [None]
  - PAIN [None]
  - PYREXIA [None]
